FAERS Safety Report 20767695 (Version 2)
Quarter: 2023Q2

REPORT INFORMATION
  Report Type: Spontaneous
  Country: CA (occurrence: CA)
  Receive Date: 20220429
  Receipt Date: 20230420
  Transmission Date: 20230721
  Serious: Yes (Hospitalization, Other)
  Sender: FDA-Public Use
  Company Number: CA-AUROBINDO-AUR-APL-2022-014855

PATIENT
  Age: 84 Year
  Sex: Female

DRUGS (2)
  1. AMLODIPINE [Suspect]
     Active Substance: AMLODIPINE BESYLATE
     Indication: Blood pressure measurement
     Dosage: UNK
     Route: 065
  2. OLUMIANT [Suspect]
     Active Substance: BARICITINIB
     Indication: Rheumatoid arthritis
     Dosage: 2 MILLIGRAM
     Route: 048

REACTIONS (6)
  - Urinary retention [Unknown]
  - Constipation [Unknown]
  - Asthenia [Unknown]
  - Creatinine renal clearance decreased [Unknown]
  - Illness [Unknown]
  - COVID-19 [Unknown]
